FAERS Safety Report 7754418-X (Version None)
Quarter: 2011Q3

REPORT INFORMATION
  Report Type: 
  Country: None (occurrence: None)
  Receive Date: 20110915
  Receipt Date: 20110907
  Transmission Date: 20111222
  Serious: Yes (Hospitalization, Other)
  Sender: FDA-Public Use
  Company Number: US-ELI_LILLY_AND_COMPANY-US201106008619

PATIENT
  Sex: Female
  Weight: 81.179 kg

DRUGS (4)
  1. CORTICOSTEROID NOS [Concomitant]
     Dosage: 4 MG, UNK
     Route: 048
     Dates: start: 20110401, end: 20110501
  2. FOLIC ACID [Concomitant]
     Dosage: 4 MG, UNK
     Route: 048
     Dates: start: 20110401, end: 20110501
  3. ALIMTA [Suspect]
     Indication: NON-SMALL CELL LUNG CANCER STAGE IV
     Dosage: 940 MG, EVERY 21 DAYS
     Route: 042
     Dates: start: 20110420
  4. VITAMIN B-12 [Concomitant]
     Dosage: 1000 MG, UNK
     Route: 058
     Dates: start: 20110401, end: 20110501

REACTIONS (2)
  - CELLULITIS [None]
  - METASTATIC NEOPLASM [None]
